FAERS Safety Report 6256920-9 (Version None)
Quarter: 2009Q3

REPORT INFORMATION
  Report Type: 
  Country: None (occurrence: None)
  Receive Date: 20090706
  Receipt Date: 20090624
  Transmission Date: 20100115
  Serious: Yes (Hospitalization, Other)
  Sender: FDA-Public Use
  Company Number: PHHY2009DE21015

PATIENT
  Sex: Male

DRUGS (12)
  1. LEPONEX [Suspect]
     Indication: PSYCHOTIC DISORDER
     Dosage: 300 MG/DAY
     Route: 048
     Dates: end: 20090527
  2. LEPONEX [Suspect]
     Dosage: 500 MG/DAY
     Route: 048
     Dates: start: 20090527
  3. ROXITHROMYCIN [Suspect]
     Indication: PNEUMONIA
     Dosage: 300 MG/DAY
     Route: 048
     Dates: start: 20090519, end: 20090522
  4. AMPICILLIN AND SULBACTAM [Suspect]
     Indication: PNEUMONIA
     Dosage: 4.5 G/DAY
     Route: 042
     Dates: start: 20090519, end: 20090525
  5. ANTIBIOTICS [Concomitant]
  6. DOMINAL FORTE [Concomitant]
     Indication: PSYCHOTIC DISORDER
     Dosage: 40 MG/DAY
     Route: 048
  7. ATONIL [Concomitant]
     Indication: PSYCHOTIC DISORDER
     Dosage: 50 MG/DAY
     Route: 048
  8. ENALAPRIL [Concomitant]
     Indication: HYPERTENSION
     Dosage: 20 MG/DAY
     Route: 048
  9. HYDROCHLOROTHIAZIDE [Concomitant]
     Indication: HYPERTENSION
     Dosage: 12.5 MG/DAY
     Route: 048
  10. BISOPROLOL FUMARATE [Concomitant]
     Indication: HYPERTENSION
     Dosage: 10 MG/DAY
     Route: 048
  11. PIPRIL [Concomitant]
     Indication: PNEUMONIA
     Dosage: 12 G, UNK
     Route: 042
     Dates: start: 20090526, end: 20090609
  12. COMBACTAM [Concomitant]
     Indication: PNEUMONIA
     Dosage: 3 G, UNK
     Route: 042
     Dates: start: 20090526, end: 20090609

REACTIONS (4)
  - BLOOD PRESSURE INCREASED [None]
  - ELECTROCARDIOGRAM QT PROLONGED [None]
  - HEPATIC ENZYME INCREASED [None]
  - LUNG INFILTRATION [None]
